FAERS Safety Report 9729730 (Version 1)
Quarter: 2013Q4

REPORT INFORMATION
  Report Type: Spontaneous
  Country: US (occurrence: US)
  Receive Date: 20131204
  Receipt Date: 20131204
  Transmission Date: 20140711
  Serious: No
  Sender: FDA-Public Use
  Company Number: US-GILEAD-2009-0021878

PATIENT
  Sex: Male
  Weight: 90.26 kg

DRUGS (14)
  1. LETAIRIS [Suspect]
     Indication: PULMONARY ARTERIAL HYPERTENSION
     Route: 048
     Dates: start: 20090505
  2. COREG [Concomitant]
  3. DIGOXIN [Concomitant]
  4. LASIX [Concomitant]
  5. REVATIO [Concomitant]
  6. ADVAIR [Concomitant]
  7. SPIRIVA [Concomitant]
  8. XOPENEX [Concomitant]
  9. FOLIC ACID [Concomitant]
  10. UROXATRAL [Concomitant]
  11. POTASSIUM CHLORIDE [Concomitant]
  12. MAGNESIUM OXIDE [Concomitant]
  13. L-CARNITINE [Concomitant]
  14. DITROPAN XL [Concomitant]

REACTIONS (2)
  - Urine output increased [Not Recovered/Not Resolved]
  - Chromaturia [Not Recovered/Not Resolved]
